FAERS Safety Report 17146660 (Version 2)
Quarter: 2020Q1

REPORT INFORMATION
  Report Type: Report from Study
  Country: AU (occurrence: AU)
  Receive Date: 20191212
  Receipt Date: 20200213
  Transmission Date: 20200409
  Serious: Yes (Hospitalization)
  Sender: FDA-Public Use
  Company Number: NVSC2019AU061038

PATIENT
  Age: 46 Year
  Sex: Female
  Weight: 44.6 kg

DRUGS (9)
  1. ALPELISIB [Suspect]
     Active Substance: ALPELISIB
     Dosage: 350 MG, QD
     Route: 048
     Dates: start: 20191125, end: 20191125
  2. ZOLADEX [Concomitant]
     Active Substance: GOSERELIN ACETATE
     Indication: MENOPAUSAL SYMPTOMS
     Dosage: 3.6 MG, QMO
     Route: 065
     Dates: start: 201306
  3. ALPELISIB [Suspect]
     Active Substance: ALPELISIB
     Dosage: 300 MG, QD
     Route: 048
     Dates: start: 20191202, end: 20191202
  4. ALPELISIB [Suspect]
     Active Substance: ALPELISIB
     Indication: BREAST CANCER
     Dosage: 350 MG, QD
     Route: 048
     Dates: start: 20191106, end: 20191117
  5. LORATADINE. [Concomitant]
     Active Substance: LORATADINE
     Indication: PROPHYLAXIS
     Dosage: 10 MG
     Route: 065
     Dates: start: 20191106, end: 20191202
  6. CLEXANE [Concomitant]
     Active Substance: ENOXAPARIN SODIUM
     Indication: PULMONARY EMBOLISM
     Dosage: 40 MG, QD
     Route: 065
     Dates: start: 20191126
  7. TEMAZEPAM. [Concomitant]
     Active Substance: TEMAZEPAM
     Indication: INSOMNIA
     Dosage: 10 MG, PRN
     Route: 065
     Dates: start: 20191127
  8. PREDNISOLONE. [Concomitant]
     Active Substance: PREDNISOLONE
     Indication: RASH
     Dosage: 15 MG, QD
     Route: 048
     Dates: start: 20191127, end: 20191202
  9. XGEVA [Concomitant]
     Active Substance: DENOSUMAB
     Indication: BONE DISORDER
     Dosage: 120 MG, QMO
     Route: 065
     Dates: start: 20190426

REACTIONS (3)
  - Chills [Recovered/Resolved]
  - Vomiting [Recovered/Resolved]
  - Pyrexia [Recovered/Resolved]

NARRATIVE: CASE EVENT DATE: 20191202
